FAERS Safety Report 5201404-X (Version None)
Quarter: 2007Q1

REPORT INFORMATION
  Report Type: 
  Country: None (occurrence: None)
  Receive Date: 20070104
  Receipt Date: 20060821
  Transmission Date: 20070707
  Serious: Yes (Other)
  Sender: FDA-Public Use
  Company Number: 2006BH012762

PATIENT
  Age: 33 Year
  Sex: Male

DRUGS (2)
  1. FLAGYL [Suspect]
     Indication: LIVER ABSCESS
     Dosage: 72 GM;
  2. CEFTRIAXONE [Concomitant]

REACTIONS (3)
  - CEREBELLAR ATAXIA [None]
  - NEUROTOXICITY [None]
  - POLYNEUROPATHY [None]
